FAERS Safety Report 15661195 (Version 2)
Quarter: 2020Q3

REPORT INFORMATION
  Report Type: Spontaneous
  Country: US (occurrence: US)
  Receive Date: 20181127
  Receipt Date: 20200819
  Transmission Date: 20201102
  Serious: Yes (Hospitalization, Other)
  Sender: FDA-Public Use
  Company Number: US-GILEAD-2018-0376107

PATIENT
  Sex: Male
  Weight: 97.5 kg

DRUGS (17)
  1. INVANZ [Concomitant]
     Active Substance: ERTAPENEM SODIUM
  2. SODIUM CHLORIDE. [Concomitant]
     Active Substance: SODIUM CHLORIDE
  3. ZIAGEN [Concomitant]
     Active Substance: ABACAVIR SULFATE
  4. BARIUM SULFATE [Concomitant]
     Active Substance: BARIUM SULFATE
  5. STRIBILD [Suspect]
     Active Substance: COBICISTAT\ELVITEGRAVIR\EMTRICITABINE\TENOFOVIR DISOPROXIL FUMARATE
     Indication: HIV INFECTION
     Dosage: UNK
     Route: 048
     Dates: start: 201212, end: 20181027
  6. ENALAPRIL [Concomitant]
     Active Substance: ENALAPRIL
  7. PEPCID [Concomitant]
     Active Substance: FAMOTIDINE
  8. NEXIUM CONTROL [Concomitant]
     Active Substance: ESOMEPRAZOLE MAGNESIUM
  9. NITROFURANTOIN. [Concomitant]
     Active Substance: NITROFURANTOIN
  10. ZOFRAN [Concomitant]
     Active Substance: ONDANSETRON HYDROCHLORIDE
  11. HYTRIN [Concomitant]
     Active Substance: TERAZOSIN HYDROCHLORIDE
  12. TRAMADOL. [Concomitant]
     Active Substance: TRAMADOL
  13. GENVOYA [Concomitant]
     Active Substance: COBICISTAT\ELVITEGRAVIR\EMTRICITABINE\TENOFOVIR ALAFENAMIDE FUMARATE
  14. TRIUMEQ [Concomitant]
     Active Substance: ABACAVIR SULFATE\DOLUTEGRAVIR SODIUM\LAMIVUDINE
  15. OXYBUTYNIN CHLORIDE. [Concomitant]
     Active Substance: OXYBUTYNIN CHLORIDE
  16. PROTONIX [OMEPRAZOLE] [Concomitant]
     Active Substance: OMEPRAZOLE
  17. ROCEPHINE [Concomitant]
     Active Substance: CEFTRIAXONE SODIUM

REACTIONS (10)
  - Emotional distress [Not Recovered/Not Resolved]
  - Nephrolithiasis [Not Recovered/Not Resolved]
  - Pain [Not Recovered/Not Resolved]
  - Acute kidney injury [Not Recovered/Not Resolved]
  - Chronic kidney disease [Not Recovered/Not Resolved]
  - Anhedonia [Not Recovered/Not Resolved]
  - Economic problem [Unknown]
  - Anxiety [Not Recovered/Not Resolved]
  - Postoperative renal failure [Not Recovered/Not Resolved]
  - Blood creatinine increased [Unknown]

NARRATIVE: CASE EVENT DATE: 2016
